FAERS Safety Report 9399613 (Version 1)
Quarter: 2013Q3

REPORT INFORMATION
  Report Type: Spontaneous
  Country: SE (occurrence: None)
  Receive Date: 20130710
  Receipt Date: 20130710
  Transmission Date: 20140515
  Serious: Yes (Disabling, Other)
  Sender: FDA-Public Use
  Company Number: 2013195108

PATIENT
  Age: 64 Year
  Sex: Male

DRUGS (2)
  1. FRAGMIN [Suspect]
     Indication: DEEP VEIN THROMBOSIS
     Route: 058
     Dates: start: 20120720, end: 20120804
  2. WARFARIN [Suspect]
     Indication: DEEP VEIN THROMBOSIS
     Dosage: 2.5MG, 1 X/DAY, ORAL
     Route: 048
     Dates: start: 20120720, end: 20120902

REACTIONS (8)
  - Oedema peripheral [None]
  - Pain [None]
  - Skin discolouration [None]
  - Amnesia [None]
  - Cognitive disorder [None]
  - Pain in extremity [None]
  - Pain in extremity [None]
  - Blister [None]
